FAERS Safety Report 5010020-4 (Version None)
Quarter: 2006Q2

REPORT INFORMATION
  Report Type: 
  Country: None (occurrence: None)
  Receive Date: 20060511
  Receipt Date: 20060428
  Transmission Date: 20061013
  Serious: Yes (Other)
  Sender: FDA-Public Use
  Company Number: 200610509BYL

PATIENT
  Age: 7 Year
  Sex: Male
  Weight: 27.4 kg

DRUGS (2)
  1. GAMIMUNE N 5% [Suspect]
     Indication: ACQUIRED EPILEPTIC APHASIA
     Dosage: 12.5 G, TOTAL DAILY, INTRAVENOUS DRIP
     Route: 041
     Dates: start: 20060323, end: 20060324
  2. SELENICA-R [Concomitant]

REACTIONS (1)
  - MENINGITIS ASEPTIC [None]
